FAERS Safety Report 8197811-6 (Version None)
Quarter: 2012Q1

REPORT INFORMATION
  Report Type: 
  Country: None (occurrence: None)
  Receive Date: 20120309
  Receipt Date: 20120302
  Transmission Date: 20120608
  Serious: Yes (Other)
  Sender: FDA-Public Use
  Company Number: US-JNJFOC-20120302594

PATIENT
  Sex: Female
  Weight: 63.5 kg

DRUGS (3)
  1. MOTRIN IB [Suspect]
     Indication: MUSCLE SPASMS
     Route: 048
  2. MOTRIN IB [Suspect]
     Route: 048
  3. ALL OTHER THERAPEUTIC PRODUCTS [Concomitant]

REACTIONS (2)
  - THROAT TIGHTNESS [None]
  - URTICARIA [None]
